FAERS Safety Report 8292678-X (Version None)
Quarter: 2012Q2

REPORT INFORMATION
  Report Type: 
  Country: None (occurrence: None)
  Receive Date: 20120417
  Receipt Date: 20110624
  Transmission Date: 20120825
  Serious: No
  Sender: FDA-Public Use
  Company Number: US-ASTRAZENECA-2010SE61333

PATIENT
  Age: 51 Year
  Sex: Female
  Weight: 96.2 kg

DRUGS (14)
  1. LYRICA [Concomitant]
  2. FLOVENT [Concomitant]
  3. SEROQUEL XR [Suspect]
     Route: 048
     Dates: start: 20110601
  4. TRILIPIX [Concomitant]
  5. PRILOSEC OTC [Suspect]
     Route: 048
  6. SEROQUEL XR [Suspect]
     Indication: DEPRESSION
     Route: 048
     Dates: start: 20100101, end: 20110601
  7. CRESTOR [Concomitant]
     Indication: HYPERCHOLESTEROLAEMIA
     Route: 048
     Dates: start: 20090101, end: 20110601
  8. CELEXA [Concomitant]
  9. SYMBICORT [Concomitant]
     Indication: ASTHMA
     Dosage: 160, PRN
     Route: 055
  10. NEXIUM [Suspect]
     Indication: IRRITABLE BOWEL SYNDROME
     Route: 048
     Dates: start: 20080101, end: 20110601
  11. CLONIDINE [Concomitant]
  12. REMERON [Concomitant]
  13. NORCO [Concomitant]
  14. AMBIEN [Concomitant]

REACTIONS (14)
  - HEADACHE [None]
  - VOMITING [None]
  - DRUG INEFFECTIVE [None]
  - CHILLS [None]
  - PILOERECTION [None]
  - DEPRESSION [None]
  - TREMOR [None]
  - LETHARGY [None]
  - DRUG DOSE OMISSION [None]
  - INTERVERTEBRAL DISC DEGENERATION [None]
  - OFF LABEL USE [None]
  - DRUG WITHDRAWAL SYNDROME [None]
  - NAUSEA [None]
  - INSOMNIA [None]
